FAERS Safety Report 14494642 (Version 1)
Quarter: 2018Q1

REPORT INFORMATION
  Report Type: Spontaneous
  Country: RU (occurrence: RU)
  Receive Date: 20180206
  Receipt Date: 20180206
  Transmission Date: 20180509
  Serious: Yes (Other)
  Sender: FDA-Public Use
  Company Number: RU-TEVA-2018-RU-854172

PATIENT
  Age: 55 Year
  Sex: Female

DRUGS (3)
  1. FINLEPSIN [Suspect]
     Active Substance: CARBAMAZEPINE
     Dosage: 100 MILLIGRAM DAILY;
     Route: 048
     Dates: start: 20180101
  2. FINLEPSIN [Suspect]
     Active Substance: CARBAMAZEPINE
     Dosage: 50 MILLIGRAM DAILY;
     Route: 048
     Dates: start: 20171218
  3. FINLEPSIN [Suspect]
     Active Substance: CARBAMAZEPINE
     Dosage: 200 MILLIGRAM DAILY;
     Route: 048
     Dates: start: 201710, end: 20171218

REACTIONS (5)
  - Hepatitis [Recovered/Resolved]
  - Hyponatraemia [Recovered/Resolved]
  - Drug hypersensitivity [Recovered/Resolved]
  - Cholecystitis [Recovered/Resolved]
  - Bradycardia [Recovered/Resolved]
